FAERS Safety Report 9745786 (Version 1)
Quarter: 2013Q4

REPORT INFORMATION
  Report Type: Spontaneous
  Country: CN (occurrence: None)
  Receive Date: 20131205
  Receipt Date: 20131205
  Transmission Date: 20140711
  Serious: Yes (Other)
  Sender: FDA-Public Use
  Company Number: CN-JNJFOC-20131118093

PATIENT
  Age: 64 Year
  Sex: Female

DRUGS (4)
  1. DECITABINE [Suspect]
     Indication: ACUTE MYELOID LEUKAEMIA
     Dosage: 15 MG/M2, 1 IN 1 DAY, INTRAVENOUS
     Route: 042
  2. ACLACINOMYCIN (ACLARUBICIN) UNSPECIFIED [Suspect]
     Indication: ACUTE MYELOID LEUKAEMIA
     Route: 042
  3. CYTARABINE [Suspect]
     Indication: ACUTE MYELOID LEUKAEMIA
     Dosage: , 1 IN 12 HOUR, SUBCUTANEOUS
     Route: 058
  4. GRANULOCYTE COLONY-STIMULATING FACTOR NOS [Suspect]
     Indication: ACUTE MYELOID LEUKAEMIA

REACTIONS (2)
  - Infection [None]
  - Haematotoxicity [None]
